FAERS Safety Report 17014924 (Version 1)
Quarter: 2019Q4

REPORT INFORMATION
  Report Type: Spontaneous
  Country: US (occurrence: US)
  Receive Date: 20191111
  Receipt Date: 20191111
  Transmission Date: 20200122
  Serious: Yes (Other)
  Sender: FDA-Public Use
  Company Number: US-DRREDDYS-USA/USA/19/0115936

PATIENT
  Sex: Female

DRUGS (1)
  1. RANITIDINE CAPSULES 300 MG [Suspect]
     Active Substance: RANITIDINE
     Indication: GASTROOESOPHAGEAL REFLUX DISEASE
     Dosage: STARTED SINCE 20 YEARS AGO
     Route: 048
     Dates: end: 20191002

REACTIONS (1)
  - Gastric ulcer [Unknown]
